FAERS Safety Report 7973051-8 (Version None)
Quarter: 2011Q4

REPORT INFORMATION
  Report Type: 
  Country: None (occurrence: None)
  Receive Date: 20111209
  Receipt Date: 20111205
  Transmission Date: 20120403
  Serious: Yes (Hospitalization)
  Sender: FDA-Public Use
  Company Number: AUR-APL-2011-06058

PATIENT
  Age: 68 Year
  Sex: Male

DRUGS (7)
  1. GLIMIPRIDE (FLIMIPRIDE) [Concomitant]
  2. SITAGLIPTIN [Concomitant]
  3. METOPROLOL TARTRATE [Concomitant]
  4. LISINOPRIL [Concomitant]
  5. WARFARIN SODIUM [Concomitant]
  6. ATORVASTATIN [Concomitant]
  7. METFORMIN HCL [Suspect]
     Indication: TYPE 2 DIABETES MELLITUS

REACTIONS (3)
  - HEART RATE IRREGULAR [None]
  - ATRIAL FIBRILLATION [None]
  - LACTIC ACIDOSIS [None]
